FAERS Safety Report 9995838 (Version 1)
Quarter: 2014Q1

REPORT INFORMATION
  Report Type: Spontaneous
  Country: US (occurrence: None)
  Receive Date: 20140310
  Receipt Date: 20140310
  Transmission Date: 20141002
  Serious: Yes (Other)
  Sender: FDA-Public Use
  Company Number: None

PATIENT
  Age: 53 Year
  Sex: Female
  Weight: 68.04 kg

DRUGS (2)
  1. MUCINEX FAST MAX COLD, FLU + SOR, 20 ML, RECKITT BENCKISER [Suspect]
     Indication: NASOPHARYNGITIS
     Dosage: TAKEN BY MOUTH
     Dates: start: 20140303, end: 20140306
  2. MUCINEX FAST MAX COLD, FLU + SOR, 20 ML, RECKITT BENCKISER [Suspect]
     Indication: OROPHARYNGEAL PAIN
     Dosage: TAKEN BY MOUTH
     Dates: start: 20140303, end: 20140306

REACTIONS (7)
  - Eye pruritus [None]
  - Eye swelling [None]
  - Dysphagia [None]
  - Pharyngeal oedema [None]
  - Swelling face [None]
  - Dry skin [None]
  - Pruritus [None]
